FAERS Safety Report 12215355 (Version 2)
Quarter: 2016Q2

REPORT INFORMATION
  Report Type: Report from Study
  Country: US (occurrence: US)
  Receive Date: 20160328
  Receipt Date: 20160425
  Transmission Date: 20160815
  Serious: Yes (Hospitalization)
  Sender: FDA-Public Use
  Company Number: US-BIOGEN-2016BI00209026

PATIENT
  Age: 54 Year
  Sex: Female

DRUGS (1)
  1. TYSABRI [Suspect]
     Active Substance: NATALIZUMAB
     Indication: MULTIPLE SCLEROSIS
     Route: 042
     Dates: start: 20140820

REACTIONS (3)
  - Bacterial sepsis [Recovered/Resolved]
  - Poor venous access [Not Recovered/Not Resolved]
  - Intervertebral discitis [Unknown]

NARRATIVE: CASE EVENT DATE: 201601
